FAERS Safety Report 8179824-3 (Version None)
Quarter: 2012Q1

REPORT INFORMATION
  Report Type: 
  Country: None (occurrence: None)
  Receive Date: 20120302
  Receipt Date: 20120227
  Transmission Date: 20120608
  Serious: Yes (Death, Hospitalization)
  Sender: FDA-Public Use
  Company Number: US-CELGENEUS-163-21880-11112251

PATIENT
  Sex: Male
  Weight: 87.168 kg

DRUGS (17)
  1. DOLOPHINE HCL [Concomitant]
     Dosage: 10 MILLIGRAM
     Route: 065
  2. ASPIRIN [Concomitant]
     Dosage: 81 MILLIGRAM
     Route: 048
  3. ZOVIRAX [Concomitant]
     Dosage: 800 MILLIGRAM
     Route: 048
  4. ZOMETA [Concomitant]
     Dosage: 4 MILLIGRAM
     Route: 041
  5. MICRO-K [Concomitant]
     Dosage: 2 CAPSULE
     Route: 048
  6. ALLEGRA [Concomitant]
     Dosage: 180 MILLIGRAM
     Route: 048
  7. MULTI-VITAMINS [Concomitant]
     Indication: VITAMIN SUPPLEMENTATION
     Route: 048
  8. OPIATES [Concomitant]
     Indication: PAIN
     Route: 065
  9. PERCOCET [Concomitant]
     Indication: PAIN
     Dosage: 5-325
     Route: 048
  10. MAGNESIUM ACETATE [Concomitant]
     Route: 065
  11. PRILOSEC [Concomitant]
     Dosage: 20 MILLIGRAM
     Route: 048
  12. DECADRON [Concomitant]
     Route: 048
  13. STOOL SOFTENER [Concomitant]
     Indication: CONSTIPATION
     Route: 065
  14. REVLIMID [Suspect]
     Indication: MULTIPLE MYELOMA
     Dosage: 25 MILLIGRAM
     Route: 048
     Dates: start: 20110928, end: 20111101
  15. CALCIUM CITRATE [Concomitant]
     Indication: MINERAL SUPPLEMENTATION
     Dosage: 950 MILLIGRAM
     Route: 048
  16. CRESTOR [Concomitant]
     Route: 048
  17. NITROSTAT [Concomitant]
     Indication: CHEST PAIN
     Route: 060

REACTIONS (3)
  - CONSTIPATION [None]
  - NEUROPATHY PERIPHERAL [None]
  - SUDDEN DEATH [None]
